FAERS Safety Report 4359634-5 (Version None)
Quarter: 2004Q2

REPORT INFORMATION
  Report Type: 
  Country: None (occurrence: None)
  Receive Date: 20040517
  Receipt Date: 20040517
  Transmission Date: 20050107
  Serious: Yes (Hospitalization)
  Sender: FDA-Public Use
  Company Number: None

PATIENT
  Age: 49 Year
  Sex: Female
  Weight: 93.8946 kg

DRUGS (3)
  1. CISPLATIN [Suspect]
     Indication: BREAST CANCER METASTATIC
     Dosage: 50 MG IV DAY 1-4
     Route: 042
  2. GEMCITABINE [Suspect]
     Indication: BREAST CANCER METASTATIC
     Dosage: 1000 MG GEMCITABINE DAY 2 AND 8
  3. NEUPOGEN [Concomitant]

REACTIONS (4)
  - DEHYDRATION [None]
  - DIARRHOEA [None]
  - FEBRILE NEUTROPENIA [None]
  - VOMITING [None]
